FAERS Safety Report 11810066 (Version 2)
Quarter: 2016Q2

REPORT INFORMATION
  Report Type: Spontaneous
  Country: US (occurrence: US)
  Receive Date: 20151208
  Receipt Date: 20160406
  Transmission Date: 20160815
  Serious: No
  Sender: FDA-Public Use
  Company Number: US-ASTRAZENECA-2015SF20618

PATIENT
  Age: 12665 Day
  Sex: Female
  Weight: 86.2 kg

DRUGS (5)
  1. STATIN MEDICATION [Concomitant]
     Active Substance: UNSPECIFIED INGREDIENT
  2. BYDUREON [Suspect]
     Active Substance: EXENATIDE
     Indication: TYPE 2 DIABETES MELLITUS
     Route: 058
     Dates: start: 2012
  3. NOVLOG [Concomitant]
  4. LANTUS [Concomitant]
     Active Substance: INSULIN GLARGINE
  5. ACTOS [Concomitant]
     Active Substance: PIOGLITAZONE HYDROCHLORIDE

REACTIONS (3)
  - Early satiety [Recovering/Resolving]
  - Weight decreased [Unknown]
  - Therapeutic response unexpected [Unknown]

NARRATIVE: CASE EVENT DATE: 20130501
